FAERS Safety Report 23170222 (Version 2)
Quarter: 2023Q4

REPORT INFORMATION
  Report Type: Report from Study
  Country: US (occurrence: US)
  Receive Date: 20231110
  Receipt Date: 20231215
  Transmission Date: 20240110
  Serious: Yes (Death, Other)
  Sender: FDA-Public Use
  Company Number: US-APELLIS PHARMACEUTICALS-APL-2023-003252

PATIENT
  Age: 92 Year
  Sex: Male

DRUGS (1)
  1. PEGCETACOPLAN [Suspect]
     Active Substance: PEGCETACOPLAN
     Indication: Dry age-related macular degeneration
     Dosage: 15 MILLIGRAM, OS EVERY 6-7 WEEKS
     Dates: start: 20230302, end: 20230615

REACTIONS (4)
  - Death [Fatal]
  - Age-related macular degeneration [Unknown]
  - Age-related macular degeneration [Unknown]
  - Retinal haemorrhage [Unknown]

NARRATIVE: CASE EVENT DATE: 20230801
